FAERS Safety Report 9026721 (Version 2)
Quarter: 2013Q2

REPORT INFORMATION
  Report Type: Spontaneous
  Country: US (occurrence: None)
  Receive Date: 20120525
  Receipt Date: 20120827
  Transmission Date: 20140414
  Serious: Yes (Other)
  Sender: FDA-Public Use
  Company Number: 349535

PATIENT
  Age: 48 Year
  Sex: Female
  Weight: 108.4 kg

DRUGS (6)
  1. VICTOZA (LIRAGLUTIDE) SOLUTION FOR INJECTION, 6MG/ML [Suspect]
     Indication: TYPE 2 DIABETES MELLITUS
     Route: 058
     Dates: start: 20120223, end: 20120316
  2. SYNTHROID (LEVOTHYROXINE SODIUM) [Concomitant]
  3. JANUVIA (SITAGLIPTIN PHOSPHATE) [Concomitant]
  4. ZOLOFT (SERTRALINE HYDROCHLORIDE) [Concomitant]
  5. INDERAL (PROPRANOLOL HYDROCHLORIDE) [Concomitant]
  6. RELPAX (ELETRIPTAN HYDROBROMIDE) [Concomitant]

REACTIONS (3)
  - Pancreatitis [None]
  - Hepatomegaly [None]
  - Hepatic steatosis [None]
